FAERS Safety Report 7652277-7 (Version None)
Quarter: 2011Q3

REPORT INFORMATION
  Report Type: 
  Country: None (occurrence: None)
  Receive Date: 20110728
  Receipt Date: 20110713
  Transmission Date: 20111222
  Serious: Yes (Other)
  Sender: FDA-Public Use
  Company Number: TPA2011A04017

PATIENT

DRUGS (1)
  1. ACTOS [Suspect]
     Dates: end: 20110101

REACTIONS (1)
  - BLADDER CANCER [None]
